FAERS Safety Report 8251701-9 (Version None)
Quarter: 2012Q1

REPORT INFORMATION
  Report Type: 
  Country: None (occurrence: None)
  Receive Date: 20120321
  Receipt Date: 20120123
  Transmission Date: 20120608
  Serious: Yes (Other)
  Sender: FDA-Public Use
  Company Number: 1154646

PATIENT
  Age: 49 Year
  Sex: Female
  Weight: 56.82 kg

DRUGS (2)
  1. CIPROFLOXACIN [Suspect]
     Indication: SURGERY
     Dosage: 400 MG, X 1 DOSE, INTRAVENOUS DRIP
     Route: 041
     Dates: start: 20111202
  2. KETOROLAC TROMETHAMINE (KETOROLAC TROMETAMOL) [Concomitant]

REACTIONS (1)
  - INFUSION SITE ERYTHEMA [None]
